FAERS Safety Report 9012059 (Version 2)
Quarter: 2013Q1

REPORT INFORMATION
  Report Type: Spontaneous
  Country: US (occurrence: US)
  Receive Date: 20130114
  Receipt Date: 20130125
  Transmission Date: 20140127
  Serious: Yes (Hospitalization)
  Sender: FDA-Public Use
  Company Number: US-BAYER-2013-003186

PATIENT
  Age: 26 Year
  Sex: Female

DRUGS (6)
  1. YAZ [Suspect]
     Dosage: UNK
     Dates: start: 200911, end: 201102
  2. GIANVI [Suspect]
     Dosage: UNK
     Dates: start: 201006, end: 201011
  3. CEPHALEXIN [Concomitant]
     Dosage: 500 MG, UNK
     Dates: start: 20110215
  4. OXYCODONE W/PARACETAMOL [Concomitant]
     Indication: PAIN
     Dosage: 5-325 MG, EVERY 4 HOURS AS NEEDED
     Dates: start: 20110215
  5. ZOLPIDEM TARTRATE [Concomitant]
     Dosage: 5 MG, UNK
     Dates: start: 20110215
  6. TYLENOL [Concomitant]
     Dosage: 500 MG, EVERY 6 HOURS AS NEEDED

REACTIONS (1)
  - Deep vein thrombosis [Recovered/Resolved]
